FAERS Safety Report 19681508 (Version 1)
Quarter: 2021Q3

REPORT INFORMATION
  Report Type: Spontaneous
  Country: US (occurrence: US)
  Receive Date: 20210810
  Receipt Date: 20210810
  Transmission Date: 20211014
  Serious: No
  Sender: FDA-Public Use
  Company Number: US-ECOLAB-2020-US-022601

PATIENT
  Age: 22 Year
  Sex: Female
  Weight: 58.97 kg

DRUGS (1)
  1. SCRUB?STAT [Suspect]
     Active Substance: CHLORHEXIDINE GLUCONATE
     Indication: OFF LABEL USE
     Dates: start: 20201103, end: 20201103

REACTIONS (3)
  - Ocular hyperaemia [Recovered/Resolved]
  - Intentional product misuse [Recovered/Resolved]
  - Eye irritation [Recovered/Resolved]

NARRATIVE: CASE EVENT DATE: 20201103
